FAERS Safety Report 25220858 (Version 1)
Quarter: 2025Q2

REPORT INFORMATION
  Report Type: Spontaneous
  Country: US (occurrence: None)
  Receive Date: 20250419
  Receipt Date: 20250419
  Transmission Date: 20250716
  Serious: Yes (Hospitalization)
  Sender: FDA-CTU
  Company Number: None

PATIENT
  Age: 75 Year
  Sex: Male
  Weight: 68.04 kg

DRUGS (9)
  1. DAPTOMYCIN [Suspect]
     Active Substance: DAPTOMYCIN
     Indication: Staphylococcal bacteraemia
     Dosage: FREQUENCY : DAILY;?
     Route: 042
     Dates: start: 20250316, end: 20250410
  2. ACETAMINOPHEN [Concomitant]
     Active Substance: ACETAMINOPHEN
  3. ALBUTEROL [Concomitant]
     Active Substance: ALBUTEROL
  4. CEFTAROLINE [Concomitant]
     Active Substance: CEFTAROLINE
  5. Rifmpin [Concomitant]
  6. PRAZOSIN [Concomitant]
     Active Substance: PRAZOSIN
  7. OXYCODONE [Concomitant]
     Active Substance: OXYCODONE
  8. NAPROXEN [Concomitant]
     Active Substance: NAPROXEN
  9. CYCLOBENZAPRINE [Concomitant]
     Active Substance: CYCLOBENZAPRINE

REACTIONS (16)
  - Pneumonitis [None]
  - Adverse drug reaction [None]
  - Chronic obstructive pulmonary disease [None]
  - Emphysema [None]
  - Bronchial wall thickening [None]
  - Pulmonary embolism [None]
  - Fat embolism [None]
  - Atypical pneumonia [None]
  - Pneumonia viral [None]
  - Pneumonia [None]
  - Idiopathic interstitial pneumonia [None]
  - Hypersensitivity [None]
  - Pulmonary oedema [None]
  - Pulmonary arterial hypertension [None]
  - Coronary artery disease [None]
  - Acute respiratory distress syndrome [None]

NARRATIVE: CASE EVENT DATE: 20250410
